FAERS Safety Report 8371351-3 (Version None)
Quarter: 2012Q2

REPORT INFORMATION
  Report Type: 
  Country: None (occurrence: None)
  Receive Date: 20120518
  Receipt Date: 20120508
  Transmission Date: 20120825
  Serious: Yes (Hospitalization)
  Sender: FDA-Public Use
  Company Number: JP-JNJFOC-20120205472

PATIENT
  Age: 56 Year
  Sex: Male

DRUGS (3)
  1. TACROLIMUS [Interacting]
     Indication: PROPHYLAXIS AGAINST TRANSPLANT REJECTION
     Route: 065
  2. TACROLIMUS [Interacting]
     Route: 065
  3. ITRACONAZOLE [Suspect]
     Indication: INFECTION PROPHYLAXIS
     Route: 048
     Dates: start: 20101223, end: 20110711

REACTIONS (4)
  - DRUG INTERACTION [None]
  - PRODUCT CONTAINER ISSUE [None]
  - IMMUNOSUPPRESSANT DRUG LEVEL DECREASED [None]
  - TREATMENT NONCOMPLIANCE [None]
